FAERS Safety Report 6648026 (Version 2)
Quarter: 2018Q3

REPORT INFORMATION
  Report Type: Spontaneous
  Country: DE (occurrence: DE)
  Receive Date: 20080523
  Receipt Date: 20180924
  Transmission Date: 20181010
  Serious: Yes (Other)
  Sender: FDA-Public Use
  Company Number: DE-ELI_LILLY_AND_COMPANY-DE200805002345

PATIENT
  Sex: Female

DRUGS (5)
  1. KATADOLON                          /00890102/ [Concomitant]
     Active Substance: FLUPIRTINE
     Indication: PAIN IN EXTREMITY
     Dosage: UNK, EACH EVENING
     Route: 048
     Dates: start: 20071001, end: 20071227
  2. CYMBALTA [Suspect]
     Active Substance: DULOXETINE HYDROCHLORIDE
     Indication: PAIN
     Dosage: 30 MG, EACH EVENING
     Route: 048
     Dates: start: 20071204, end: 20071227
  3. LYRICA [Concomitant]
     Active Substance: PREGABALIN
     Indication: PAIN IN EXTREMITY
     Dosage: 75 MG, 2/D
     Route: 048
     Dates: start: 20070628, end: 20071227
  4. DOXEPIN [Concomitant]
     Active Substance: DOXEPIN
     Indication: SLEEP DISORDER
     Dosage: 6 D/F, EACH EVENING
     Route: 048
     Dates: start: 20070619, end: 20071204
  5. NAPROXEN. [Concomitant]
     Active Substance: NAPROXEN
     Dosage: UNK, 2/D
     Route: 048
     Dates: start: 200706, end: 200707

REACTIONS (3)
  - Gastrooesophageal reflux disease [Unknown]
  - Gastritis [Unknown]
  - Hepatitis acute [Unknown]
